FAERS Safety Report 12992952 (Version 2)
Quarter: 2017Q1

REPORT INFORMATION
  Report Type: Report from Study
  Country: DE (occurrence: DE)
  Receive Date: 20161202
  Receipt Date: 20170106
  Transmission Date: 20170428
  Serious: Yes (Hospitalization)
  Sender: FDA-Public Use
  Company Number: DE-BIOGEN-2016BI00322886

PATIENT
  Age: 33 Year
  Sex: Female
  Weight: 60 kg

DRUGS (15)
  1. TYSABRI [Suspect]
     Active Substance: NATALIZUMAB
     Indication: MULTIPLE SCLEROSIS
     Dosage: INFUSED OVER 1 HOUR
     Route: 042
     Dates: start: 20130716
  2. BACLOFEN. [Concomitant]
     Active Substance: BACLOFEN
     Dosage: 1 IN THE MORNING AND 1 IN THE EVENING
     Route: 065
     Dates: start: 20150506, end: 20150804
  3. BACLOFEN. [Concomitant]
     Active Substance: BACLOFEN
     Dosage: 25
     Route: 065
  4. BOTOX 100E [Concomitant]
     Indication: MUSCLE DISORDER
     Route: 065
     Dates: start: 20141217
  5. L-THYROXINE [Concomitant]
     Active Substance: LEVOTHYROXINE
     Indication: HYPOTHYROIDISM
     Route: 065
     Dates: start: 2012
  6. VITAMIN D3 [Concomitant]
     Active Substance: CHOLECALCIFEROL
     Indication: OSTEOPOROSIS PROPHYLAXIS
     Route: 048
     Dates: start: 20150506
  7. L-THYROXINE [Concomitant]
     Active Substance: LEVOTHYROXINE
     Dosage: 75
     Route: 065
  8. FLUOXETINE [Concomitant]
     Active Substance: FLUOXETINE HYDROCHLORIDE
     Indication: ADJUSTMENT DISORDER
     Dosage: 0.5
     Route: 048
     Dates: start: 2013
  9. CLEXANE [Concomitant]
     Active Substance: ENOXAPARIN SODIUM
     Indication: THROMBOSIS PROPHYLAXIS
     Dosage: 40
     Route: 058
  10. BACLOFEN. [Concomitant]
     Active Substance: BACLOFEN
     Dosage: 10
     Route: 065
  11. BACLOFEN. [Concomitant]
     Active Substance: BACLOFEN
     Indication: MUSCLE SPASTICITY
     Dosage: IN THE MORNING
     Route: 048
     Dates: start: 20141118, end: 20150505
  12. VITAMIN D3 [Concomitant]
     Active Substance: CHOLECALCIFEROL
     Dosage: 1000
     Route: 065
  13. NOVAMIN (NOS) [Concomitant]
     Indication: PRODUCT USED FOR UNKNOWN INDICATION
     Route: 065
  14. BACLOFEN. [Concomitant]
     Active Substance: BACLOFEN
     Dosage: IN THE EVENING
     Route: 065
     Dates: start: 20150805
  15. BACLOFEN. [Concomitant]
     Active Substance: BACLOFEN
     Dosage: IN THE MORNING
     Route: 065
     Dates: start: 20150505

REACTIONS (4)
  - Contusion [Recovered/Resolved]
  - Road traffic accident [Recovered/Resolved]
  - Pleural effusion [Recovered/Resolved]
  - Splenic rupture [Recovered/Resolved]

NARRATIVE: CASE EVENT DATE: 20161102
